FAERS Safety Report 18307519 (Version 1)
Quarter: 2020Q3

REPORT INFORMATION
  Report Type: Spontaneous
  Country: GB (occurrence: GB)
  Receive Date: 20200924
  Receipt Date: 20200924
  Transmission Date: 20201103
  Serious: Yes (Other)
  Sender: FDA-Public Use
  Company Number: GB-MYLANLABS-2020M1079957

PATIENT
  Age: 36 Year
  Sex: Female
  Weight: 89 kg

DRUGS (11)
  1. METFORMIN [Suspect]
     Active Substance: METFORMIN HYDROCHLORIDE
     Indication: DIABETES MELLITUS
     Dosage: 500 MILLIGRAM, QD
     Route: 065
     Dates: start: 20200824
  2. DALTEPARIN [Suspect]
     Active Substance: DALTEPARIN
     Indication: PRODUCT USED FOR UNKNOWN INDICATION
     Dosage: 18000 INTERNATIONAL UNIT, QD
     Route: 065
     Dates: start: 20200824
  3. ETOPOSIDE. [Suspect]
     Active Substance: ETOPOSIDE
     Indication: GERM CELL NEOPLASM
     Dosage: UNK
     Route: 065
  4. SODIUM CHLORIDE. [Suspect]
     Active Substance: SODIUM CHLORIDE
     Indication: MEDICATION DILUTION
     Dosage: IN CISPLATIN
     Route: 065
     Dates: start: 20200824, end: 20200824
  5. DEXAMETHASONE. [Suspect]
     Active Substance: DEXAMETHASONE
     Indication: SUPPORTIVE CARE
     Dosage: 8 MILLIGRAM, QD BD FOR 3 DAYS
     Route: 065
     Dates: start: 20200824, end: 20200826
  6. SODIUM CHLORIDE 0.9% [Suspect]
     Active Substance: SODIUM CHLORIDE
     Indication: MEDICATION DILUTION
     Dosage: IN ETOPOSIDE
     Route: 042
     Dates: start: 20200824, end: 20200824
  7. APREPITANT. [Suspect]
     Active Substance: APREPITANT
     Indication: PRODUCT USED FOR UNKNOWN INDICATION
     Dosage: 80 MILLIGRAM D2
     Route: 065
     Dates: start: 20200825
  8. CISPLATIN. [Suspect]
     Active Substance: CISPLATIN
     Indication: NEOPLASM RECURRENCE
     Dosage: UNK
  9. ETOPOSIDE. [Suspect]
     Active Substance: ETOPOSIDE
     Indication: NEOPLASM RECURRENCE
     Dosage: 720 MILLIGRAM, QD
     Route: 042
     Dates: start: 20200824, end: 20200824
  10. DOMPERIDONE [Suspect]
     Active Substance: DOMPERIDONE
     Indication: SUPPORTIVE CARE
     Dosage: 30 MILLIGRAM, QD PRN
     Route: 065
     Dates: start: 20200824
  11. ONDANSETRON [Suspect]
     Active Substance: ONDANSETRON
     Indication: SUPPORTIVE CARE
     Dosage: BD FOR 3 DAYS
     Route: 065
     Dates: start: 20200824, end: 20200826

REACTIONS (1)
  - Anaphylactic reaction [Recovered/Resolved]

NARRATIVE: CASE EVENT DATE: 20200824
